FAERS Safety Report 6207174-0 (Version None)
Quarter: 2009Q2

REPORT INFORMATION
  Report Type: 
  Country: None (occurrence: None)
  Receive Date: 20090528
  Receipt Date: 20090217
  Transmission Date: 20091009
  Serious: Yes (Disabling, Other)
  Sender: FDA-Public Use
  Company Number: NL-PFIZER INC-2009172986

PATIENT

DRUGS (1)
  1. DEPO-MEDROL [Suspect]
     Indication: COMPLEX REGIONAL PAIN SYNDROME

REACTIONS (3)
  - LIMB DEFORMITY [None]
  - WALKING DISABILITY [None]
  - WEIGHT DECREASED [None]
